FAERS Safety Report 17223460 (Version 2)
Quarter: 2020Q1

REPORT INFORMATION
  Report Type: Spontaneous
  Country: CN (occurrence: CN)
  Receive Date: 20200102
  Receipt Date: 20200114
  Transmission Date: 20200409
  Serious: Yes (Life-Threatening, Other)
  Sender: FDA-Public Use
  Company Number: CN-ROCHE-2511354

PATIENT
  Age: 72 Year
  Sex: Male
  Weight: 77 kg

DRUGS (1)
  1. ACTILYSE [Suspect]
     Active Substance: ALTEPLASE
     Indication: CEREBRAL INFARCTION
     Route: 041
     Dates: start: 20191117, end: 20191117

REACTIONS (4)
  - Upper gastrointestinal haemorrhage [Recovered/Resolved with Sequelae]
  - Haemorrhage intracranial [Recovered/Resolved with Sequelae]
  - Blood fibrinogen decreased [Recovered/Resolved with Sequelae]
  - Coma [Recovered/Resolved with Sequelae]

NARRATIVE: CASE EVENT DATE: 20191117
